FAERS Safety Report 9008946 (Version 2)
Quarter: 2013Q2

REPORT INFORMATION
  Report Type: Spontaneous
  Country: FR (occurrence: FR)
  Receive Date: 20130111
  Receipt Date: 20130529
  Transmission Date: 20140414
  Serious: Yes (Hospitalization)
  Sender: FDA-Public Use
  Company Number: FR-009507513-1301FRA002852

PATIENT
  Age: 57 Year
  Sex: Female

DRUGS (2)
  1. NOROXINE [Suspect]
     Dosage: 1 DF, ONCE
     Route: 048
     Dates: start: 20120511, end: 20120511
  2. LEVOTHYROX [Concomitant]
     Dosage: 1 UNK, UNK

REACTIONS (5)
  - Anaphylactoid reaction [Recovered/Resolved]
  - Generalised erythema [Recovered/Resolved]
  - Pruritus [Recovered/Resolved]
  - Loss of consciousness [Recovered/Resolved]
  - Vomiting [Recovered/Resolved]
